FAERS Safety Report 7546075-2 (Version None)
Quarter: 2011Q2

REPORT INFORMATION
  Report Type: 
  Country: None (occurrence: None)
  Receive Date: 20110614
  Receipt Date: 20110603
  Transmission Date: 20111010
  Serious: Yes (Other)
  Sender: FDA-Public Use
  Company Number: PHHY2010US89687

PATIENT
  Sex: Male

DRUGS (1)
  1. GILENYA [Suspect]
     Indication: MULTIPLE SCLEROSIS
     Dosage: 0.5 MG, QD
     Route: 048
     Dates: start: 20101004, end: 20101217

REACTIONS (4)
  - BLINDNESS [None]
  - VISION BLURRED [None]
  - MACULAR OEDEMA [None]
  - VISUAL ACUITY REDUCED [None]
